FAERS Safety Report 7335654-3 (Version None)
Quarter: 2011Q1

REPORT INFORMATION
  Report Type: 
  Country: None (occurrence: None)
  Receive Date: 20110307
  Receipt Date: 20110228
  Transmission Date: 20110831
  Serious: Yes (Hospitalization)
  Sender: FDA-Public Use
  Company Number: A0892607A

PATIENT
  Age: 73 Year
  Sex: Male

DRUGS (6)
  1. AVANDIA [Suspect]
     Indication: DIABETES MELLITUS
     Dosage: 8MG PER DAY
     Route: 048
     Dates: start: 20010626, end: 20070530
  2. ACTOS [Concomitant]
     Dates: start: 20070530
  3. GLIPIZIDE [Concomitant]
  4. ZOCOR [Concomitant]
  5. METFORMIN [Concomitant]
  6. COZAAR [Concomitant]

REACTIONS (2)
  - STENT PLACEMENT [None]
  - MYOCARDIAL INFARCTION [None]
